FAERS Safety Report 5752209-2 (Version None)
Quarter: 2008Q2

REPORT INFORMATION
  Report Type: 
  Country: None (occurrence: None)
  Receive Date: 20080529
  Receipt Date: 20080527
  Transmission Date: 20081010
  Serious: Yes (Other)
  Sender: FDA-Public Use
  Company Number: US-ELI_LILLY_AND_COMPANY-US200805005316

PATIENT
  Sex: Female

DRUGS (2)
  1. HUMULIN N [Suspect]
     Dates: end: 20050101
  2. LEVEMIR [Concomitant]

REACTIONS (5)
  - BALANCE DISORDER [None]
  - DIPLOPIA [None]
  - MULTIPLE SCLEROSIS [None]
  - PROTEINURIA [None]
  - RENAL DISORDER [None]
